FAERS Safety Report 12570226 (Version 1)
Quarter: 2016Q3

REPORT INFORMATION
  Report Type: Spontaneous
  Country: US (occurrence: None)
  Receive Date: 20160718
  Receipt Date: 20160718
  Transmission Date: 20161109
  Serious: Yes (Disabling, Other)
  Sender: FDA-Public Use
  Company Number: None

PATIENT
  Age: 63 Year
  Sex: Female
  Weight: 69.4 kg

DRUGS (2)
  1. CHEMO [Concomitant]
     Active Substance: UNSPECIFIED INGREDIENT
  2. PERTUZUMAB GENENTECH [Suspect]
     Active Substance: PERTUZUMAB
     Indication: BREAST CANCER
     Dosage: GIVEN INTO/UNDER THE SKIN
     Dates: start: 20160614, end: 20160705

REACTIONS (8)
  - Oropharyngeal pain [None]
  - Malaise [None]
  - Middle insomnia [None]
  - Oral mucosal eruption [None]
  - Wheezing [None]
  - Dyspnoea [None]
  - Cough [None]
  - Upper respiratory tract infection [None]

NARRATIVE: CASE EVENT DATE: 20160706
